FAERS Safety Report 6473396-7 (Version None)
Quarter: 2009Q4

REPORT INFORMATION
  Report Type: 
  Country: None (occurrence: None)
  Receive Date: 20091204
  Receipt Date: 20081008
  Transmission Date: 20100525
  Serious: Yes (Other)
  Sender: FDA-Public Use
  Company Number: US-ELI_LILLY_AND_COMPANY-US200810002056

PATIENT
  Sex: Male

DRUGS (9)
  1. CYMBALTA [Suspect]
     Indication: PAIN
     Dosage: 60 MG, UNK
     Dates: start: 20080401
  2. CYMBALTA [Suspect]
     Dosage: 60 MG, QOD
     Dates: start: 20080801
  3. CYMBALTA [Suspect]
     Dosage: 30 MG, DAILY (1/D)
  4. CYMBALTA [Suspect]
     Dosage: 30 MG, QOD
  5. CYMBALTA [Suspect]
     Dosage: 30 MG, OTHER
  6. CYMBALTA [Suspect]
     Dosage: 30 MG, OTHER
     Dates: end: 20080801
  7. SUBOXONE [Concomitant]
     Indication: DRUG ABUSE
  8. NEXIUM [Concomitant]
     Dosage: 40 MG, DAILY (1/D)
  9. SEROQUEL [Concomitant]
     Dosage: 400 MG, EACH EVENING

REACTIONS (14)
  - ACTIVITIES OF DAILY LIVING IMPAIRED [None]
  - CHILLS [None]
  - DIARRHOEA [None]
  - DISTURBANCE IN ATTENTION [None]
  - DIZZINESS [None]
  - DRUG INEFFECTIVE [None]
  - HEADACHE [None]
  - HYPERHIDROSIS [None]
  - INFLUENZA LIKE ILLNESS [None]
  - INSOMNIA [None]
  - OSTEOMYELITIS [None]
  - PYREXIA [None]
  - SURGERY [None]
  - WITHDRAWAL SYNDROME [None]
